FAERS Safety Report 4511565-3 (Version None)
Quarter: 2004Q4

REPORT INFORMATION
  Report Type: 
  Country: None (occurrence: None)
  Receive Date: 20041129
  Receipt Date: 20040928
  Transmission Date: 20050328
  Serious: No
  Sender: FDA-Public Use
  Company Number: US-BRISTOL-MYERS SQUIBB COMPANY-12716767

PATIENT
  Age: 10 Year
  Sex: Male
  Weight: 37 kg

DRUGS (6)
  1. ABILIFY [Suspect]
     Indication: BIPOLAR DISORDER
     Dosage: DOSE MODIFIED THROUGHOUT COURSE OF TREATMENT.
     Route: 048
     Dates: start: 20030601, end: 20040916
  2. ABILIFY [Suspect]
     Indication: AGGRESSION
     Dosage: DOSE MODIFIED THROUGHOUT COURSE OF TREATMENT.
     Route: 048
     Dates: start: 20030601, end: 20040916
  3. ABILIFY [Suspect]
     Indication: IMPULSIVE BEHAVIOUR
     Dosage: DOSE MODIFIED THROUGHOUT COURSE OF TREATMENT.
     Route: 048
     Dates: start: 20030601, end: 20040916
  4. DDAVP [Concomitant]
  5. RITALIN [Concomitant]
  6. WELLBUTRIN [Concomitant]

REACTIONS (2)
  - DYSKINESIA [None]
  - PSYCHOMOTOR HYPERACTIVITY [None]
